FAERS Safety Report 14688189 (Version 1)
Quarter: 2018Q1

REPORT INFORMATION
  Report Type: Spontaneous
  Country: US (occurrence: US)
  Receive Date: 20180328
  Receipt Date: 20180328
  Transmission Date: 20180509
  Serious: No
  Sender: FDA-Public Use
  Company Number: US-ZYDUS-019043

PATIENT
  Age: 26 Year
  Sex: Female

DRUGS (2)
  1. ORAL CONTRACEPTIVE NOS [Concomitant]
     Active Substance: UNSPECIFIED INGREDIENT
     Indication: ORAL CONTRACEPTION
  2. MESALAZINE [Suspect]
     Active Substance: MESALAMINE
     Indication: COLITIS MICROSCOPIC
     Route: 048
     Dates: start: 201712

REACTIONS (1)
  - Drug ineffective [Not Recovered/Not Resolved]
